FAERS Safety Report 8859934 (Version 5)
Quarter: 2013Q3

REPORT INFORMATION
  Report Type: Spontaneous
  Country: JP (occurrence: JP)
  Receive Date: 20121025
  Receipt Date: 20130717
  Transmission Date: 20140515
  Serious: Yes (Other)
  Sender: FDA-Public Use
  Company Number: JP-009507513-1210JPN010305

PATIENT
  Age: 70 Year
  Sex: Female

DRUGS (4)
  1. JANUVIA TABLETS 100MG [Suspect]
     Indication: DIABETES MELLITUS
     Dosage: 100 MG, QD
     Route: 048
     Dates: start: 20120601, end: 20121015
  2. LIPITOR [Concomitant]
     Indication: DYSLIPIDAEMIA
     Dosage: DAILY DOSE UNKNOWN, QD
     Route: 065
  3. MYSLEE [Concomitant]
     Indication: INSOMNIA
     Dosage: 10 MG, QD, AS NEED
     Route: 048
     Dates: start: 20120601, end: 20120913
  4. EPADEL S [Concomitant]
     Indication: DYSLIPIDAEMIA
     Dosage: 1800 MG, QD
     Route: 048
     Dates: start: 20120612, end: 20120913

REACTIONS (2)
  - Leukoderma [Not Recovered/Not Resolved]
  - Pruritus [Recovering/Resolving]
